FAERS Safety Report 17677479 (Version 2)
Quarter: 2020Q2

REPORT INFORMATION
  Report Type: Report from Study
  Country: None (occurrence: US)
  Receive Date: 20200416
  Receipt Date: 20200430
  Transmission Date: 20200714
  Serious: Yes (Hospitalization, Other)
  Sender: FDA-Public Use
  Company Number: US-ABBVIE-20K-163-3327532-00

PATIENT
  Age: 89 Year
  Sex: Female
  Weight: 52.21 kg

DRUGS (3)
  1. RINVOQ [Suspect]
     Active Substance: UPADACITINIB
     Route: 048
     Dates: start: 202002, end: 202003
  2. RINVOQ [Suspect]
     Active Substance: UPADACITINIB
     Indication: RHEUMATOID ARTHRITIS
     Route: 048
     Dates: start: 201912, end: 2020
  3. HYDROCODONE [Concomitant]
     Active Substance: HYDROCODONE
     Indication: RHEUMATOID ARTHRITIS
     Dates: start: 2016

REACTIONS (8)
  - Fall [Recovered/Resolved]
  - Head injury [Recovered/Resolved]
  - Asthenia [Recovered/Resolved]
  - Loss of consciousness [Recovered/Resolved]
  - Dehydration [Recovered/Resolved]
  - Muscular weakness [Not Recovered/Not Resolved]
  - Unevaluable event [Recovered/Resolved]
  - Intentional product misuse [Unknown]

NARRATIVE: CASE EVENT DATE: 2020
